FAERS Safety Report 8153179-2 (Version None)
Quarter: 2012Q1

REPORT INFORMATION
  Report Type: 
  Country: None (occurrence: None)
  Receive Date: 20120221
  Receipt Date: 20120213
  Transmission Date: 20120608
  Serious: Yes (Life-Threatening)
  Sender: FDA-Public Use
  Company Number: IT-CELGENEUS-083-C5013-12021431

PATIENT
  Sex: Male

DRUGS (5)
  1. LANSOPRAZOLE [Concomitant]
     Indication: PROPHYLAXIS
     Dosage: 60 MILLIGRAM
     Route: 048
     Dates: start: 20110615
  2. AMOXICILLIN [Concomitant]
     Indication: PNEUMONIA
     Dosage: 2 GRAM
     Route: 048
     Dates: start: 20110210
  3. LEVOFLOXACIN [Concomitant]
     Indication: PNEUMONIA
     Dosage: 1000 MILLIGRAM
     Route: 048
  4. LENALIDOMIDE [Suspect]
     Dosage: 7.5 MILLIGRAM
     Route: 048
     Dates: start: 20101125
  5. LENALIDOMIDE [Suspect]
     Route: 048
     Dates: start: 20120119, end: 20120213

REACTIONS (1)
  - LUNG NEOPLASM [None]
